FAERS Safety Report 7964166-9 (Version None)
Quarter: 2011Q4

REPORT INFORMATION
  Report Type: 
  Country: None (occurrence: None)
  Receive Date: 20111206
  Receipt Date: 20111123
  Transmission Date: 20120403
  Serious: Yes (Death, Hospitalization, Other)
  Sender: FDA-Public Use
  Company Number: 2011MA016791

PATIENT
  Age: 56 Year
  Sex: Female

DRUGS (1)
  1. PAREGORIC LIQUID USP (ALPHARMA) (PAREGORIC) [Suspect]
     Indication: PALLIATIVE CARE
     Dosage: PUMP;UNK;INFUSION

REACTIONS (2)
  - TOXICITY TO VARIOUS AGENTS [None]
  - ANALGESIC DRUG LEVEL INCREASED [None]
